FAERS Safety Report 4905741-5 (Version None)
Quarter: 2006Q1

REPORT INFORMATION
  Report Type: 
  Country: None (occurrence: None)
  Receive Date: 20060208
  Receipt Date: 20050216
  Transmission Date: 20060701
  Serious: Yes (Hospitalization, Disabling, Other)
  Sender: FDA-Public Use
  Company Number: US-MERCK-0502USA02090

PATIENT
  Age: 62 Year
  Sex: Female

DRUGS (1)
  1. VIOXX [Suspect]
     Indication: ARTHRALGIA
     Route: 048
     Dates: start: 20000101, end: 20040101

REACTIONS (12)
  - BACK INJURY [None]
  - CARDIAC DISORDER [None]
  - CEREBROVASCULAR ACCIDENT [None]
  - CORONARY ARTERY OCCLUSION [None]
  - CYSTOCELE [None]
  - CYSTOCELE REPAIR [None]
  - EMOTIONAL DISORDER [None]
  - HEART INJURY [None]
  - MIGRAINE [None]
  - RECTOCELE [None]
  - RECTOCELE REPAIR [None]
  - TRANSIENT ISCHAEMIC ATTACK [None]
